FAERS Safety Report 6861448 (Version 9)
Quarter: 2014Q3

REPORT INFORMATION
  Report Type: Spontaneous
  Country: JP (occurrence: JP)
  Receive Date: 20081219
  Receipt Date: 20140926
  Transmission Date: 20150326
  Serious: Yes (Other)
  Sender: FDA-Public Use
  Company Number: PHHY2008JP31593

PATIENT
  Age: 70 Year
  Sex: Female

DRUGS (10)
  1. ZOMETA [Suspect]
     Active Substance: ZOLEDRONIC ACID
     Indication: BREAST CANCER
     Dosage: 60 MG, UNK
     Route: 042
     Dates: start: 200607, end: 200709
  2. CEPHARANTHIN [Concomitant]
     Dosage: 6 DF, UNK
     Route: 048
  3. ZOMETA [Suspect]
     Active Substance: ZOLEDRONIC ACID
     Indication: METASTASES TO BONE
     Dosage: 4 MG, DAILY
     Route: 042
     Dates: start: 20060626
  4. ENDOXAN [Suspect]
     Active Substance: CYCLOPHOSPHAMIDE
     Indication: BREAST CANCER
     Dates: start: 20071130, end: 20071217
  5. CALCIUM LACTATE [Concomitant]
     Active Substance: CALCIUM LACTATE
     Dosage: 3 DF, UNK
  6. FURTULON [Suspect]
     Active Substance: DOXIFLURIDINE
     Indication: BREAST CANCER
     Dosage: 6 DF, DAILY
     Dates: start: 20061130, end: 20071217
  7. ONEALFA [Concomitant]
     Active Substance: ALFACALCIDOL
     Dosage: 1 DF, UNK
     Route: 048
  8. SELBEX [Concomitant]
     Active Substance: TEPRENONE
     Dosage: 3 DF, UNK
     Route: 048
  9. HYSRON [Suspect]
     Active Substance: MEDROXYPROGESTERONE
     Indication: METASTASES TO BONE
     Dosage: 3 DF, DAILY
     Route: 048
     Dates: start: 20061130, end: 20071217
  10. AREDIA [Suspect]
     Active Substance: PAMIDRONATE DISODIUM
     Indication: METASTASES TO BONE
     Dates: start: 200505

REACTIONS (7)
  - Osteonecrosis of jaw [Recovered/Resolved]
  - Osteomyelitis [Recovered/Resolved]
  - Fistula discharge [Unknown]
  - Primary sequestrum [Unknown]
  - Immunosuppression [Recovered/Resolved]
  - Gingival pain [Recovered/Resolved]
  - Exposed bone in jaw [Recovered/Resolved]

NARRATIVE: CASE EVENT DATE: 200706
